FAERS Safety Report 18411466 (Version 2)
Quarter: 2020Q4

REPORT INFORMATION
  Report Type: Spontaneous
  Country: PT (occurrence: PT)
  Receive Date: 20201021
  Receipt Date: 20201030
  Transmission Date: 20210114
  Serious: Yes (Hospitalization)
  Sender: FDA-Public Use
  Company Number: PT-009507513-2010PRT000408

PATIENT
  Age: 69 Year
  Sex: Female

DRUGS (4)
  1. CARBIDOPA (+) LEVODOPA [Suspect]
     Active Substance: CARBIDOPA\LEVODOPA
     Indication: PARKINSON^S DISEASE
     Dosage: UNK
     Route: 048
  2. AMANTADINE. [Suspect]
     Active Substance: AMANTADINE HYDROCHLORIDE
     Indication: PARKINSON^S DISEASE
     Dosage: UNK
  3. CLOXAZOLAM [Suspect]
     Active Substance: CLOXAZOLAM
     Indication: PARKINSON^S DISEASE
     Dosage: UNK
  4. OPICAPONE [Suspect]
     Active Substance: OPICAPONE
     Indication: PARKINSON^S DISEASE
     Dosage: UNK

REACTIONS (2)
  - Hyperthermia [Unknown]
  - Treatment noncompliance [Unknown]
